FAERS Safety Report 5855862-8 (Version None)
Quarter: 2008Q3

REPORT INFORMATION
  Report Type: 
  Country: None (occurrence: None)
  Receive Date: 20080825
  Receipt Date: 20080604
  Transmission Date: 20090109
  Serious: No
  Sender: FDA-Public Use
  Company Number: A0729256A

PATIENT
  Age: 38 Year
  Sex: Male

DRUGS (14)
  1. MALARONE [Suspect]
     Indication: LYME DISEASE
     Dosage: 2TAB PER DAY
     Route: 048
     Dates: start: 20080101
  2. ACIDOPHILUS [Concomitant]
  3. ASCORBIC ACID [Concomitant]
  4. MULTI-VITAMIN [Concomitant]
  5. VITAMIN B50 [Concomitant]
  6. LORATADINE [Concomitant]
  7. OMEPRAZOLE [Concomitant]
  8. BIAXIN [Concomitant]
  9. CEFTIN [Concomitant]
  10. PLAQUENIL [Concomitant]
  11. CLONOPIN [Concomitant]
  12. EFFEXOR XR [Concomitant]
  13. TRAZODONE HCL [Concomitant]
  14. LAMICTAL [Concomitant]

REACTIONS (2)
  - MYALGIA [None]
  - THERAPEUTIC RESPONSE UNEXPECTED [None]
